FAERS Safety Report 25124523 (Version 1)
Quarter: 2025Q1

REPORT INFORMATION
  Report Type: Spontaneous
  Country: SA (occurrence: SA)
  Receive Date: 20250326
  Receipt Date: 20250326
  Transmission Date: 20250409
  Serious: Yes (Other)
  Sender: NOVARTIS
  Company Number: SA-002147023-NVSC2025SA048105

PATIENT
  Sex: Female

DRUGS (2)
  1. KISQALI [Suspect]
     Active Substance: RIBOCICLIB
     Indication: Metastatic neoplasm
     Route: 065
  2. KISQALI [Suspect]
     Active Substance: RIBOCICLIB
     Route: 065

REACTIONS (2)
  - Urticaria [Not Recovered/Not Resolved]
  - Alanine aminotransferase increased [Unknown]
